FAERS Safety Report 6209718-1 (Version None)
Quarter: 2009Q2

REPORT INFORMATION
  Report Type: 
  Country: None (occurrence: None)
  Receive Date: 20090601
  Receipt Date: 20070605
  Transmission Date: 20091009
  Serious: Yes (Hospitalization, Other)
  Sender: FDA-Public Use
  Company Number: US-ASTRAZENECA-2006UW23787

PATIENT
  Age: 482 Month
  Sex: Female
  Weight: 87.1 kg

DRUGS (30)
  1. SEROQUEL [Suspect]
     Indication: DEPRESSION
     Route: 048
     Dates: start: 20000101, end: 20040101
  2. SEROQUEL [Suspect]
     Indication: SCHIZOPHRENIA
     Route: 048
     Dates: start: 20000101, end: 20040101
  3. SEROQUEL [Suspect]
     Indication: PERSONALITY DISORDER
     Route: 048
     Dates: start: 20000101, end: 20040101
  4. SEROQUEL [Suspect]
     Dosage: 100-500 MG
     Route: 048
     Dates: start: 20021001
  5. SEROQUEL [Suspect]
     Dosage: 100-500 MG
     Route: 048
     Dates: start: 20021001
  6. SEROQUEL [Suspect]
     Dosage: 100-500 MG
     Route: 048
     Dates: start: 20021001
  7. ABILIFY [Concomitant]
  8. RISPERDAL [Concomitant]
     Dosage: 1-6 MG
     Route: 048
     Dates: start: 20030718
  9. THORAZINE [Concomitant]
     Route: 030
     Dates: start: 20000313
  10. ZYPREXA [Concomitant]
     Dosage: 5-10 MG
     Dates: start: 20020227
  11. BUSPAR [Concomitant]
     Route: 048
     Dates: start: 20020201
  12. HYDROXYZINE [Concomitant]
     Route: 048
     Dates: start: 20040410
  13. CITALOPRAM HYDROBROMIDE [Concomitant]
  14. ZONEGRAN [Concomitant]
     Dosage: 100-200MG
     Route: 048
     Dates: start: 20050131
  15. SYNTHROID [Concomitant]
     Dosage: 0.075-0.125 MG
     Route: 048
     Dates: start: 19991111
  16. ATIVAN [Concomitant]
     Indication: NERVOUSNESS
     Route: 048
     Dates: start: 19991111
  17. ATIVAN [Concomitant]
     Indication: SLEEP DISORDER
     Route: 048
     Dates: start: 19991111
  18. GLYBURIDE [Concomitant]
     Dates: start: 20040804
  19. GLUCOPHAGE [Concomitant]
     Dates: start: 20040804
  20. ZOLOFT [Concomitant]
     Dates: start: 20050125
  21. ALBUTEROL [Concomitant]
     Dosage: 2 PUFFS Q 4 HS
     Dates: start: 20030905
  22. DIOVAN HCT [Concomitant]
     Dosage: 80-160/12.5 MG, DAILY
     Dates: start: 20031001
  23. ADVAIR DISKUS 100/50 [Concomitant]
     Dosage: 250/50-500/100 MCG
     Dates: start: 20031001
  24. NEXIUM [Concomitant]
     Route: 048
     Dates: start: 20040804
  25. PROTONIX [Concomitant]
     Route: 048
     Dates: start: 20031001
  26. LOPID [Concomitant]
     Indication: HYPERTRIGLYCERIDAEMIA
     Route: 048
     Dates: start: 20030930
  27. NAPROXEN [Concomitant]
     Dosage: 375-1500 MG
     Dates: start: 20020204
  28. NITROGLYCERIN [Concomitant]
     Dates: start: 20030930
  29. RISPERDAL CONSTA [Concomitant]
     Dosage: 37.5 MG EVERY TWO WEEKS
     Route: 030
     Dates: start: 20050125
  30. PROLIXIN [Concomitant]
     Dosage: 5-50 MG
     Route: 048
     Dates: start: 20010912

REACTIONS (5)
  - DIABETES MELLITUS [None]
  - HYPERTENSIVE CARDIOMYOPATHY [None]
  - MYOCARDIAL INFARCTION [None]
  - OVERWEIGHT [None]
  - TYPE 2 DIABETES MELLITUS [None]
